FAERS Safety Report 6569634-2 (Version None)
Quarter: 2010Q1

REPORT INFORMATION
  Report Type: 
  Country: None (occurrence: None)
  Receive Date: 20100203
  Receipt Date: 20100203
  Transmission Date: 20100710
  Serious: No
  Sender: FDA-Public Use
  Company Number: None

PATIENT
  Sex: Female
  Weight: 57.6068 kg

DRUGS (1)
  1. ROLAIDS [Suspect]
     Indication: ABDOMINAL DISCOMFORT
     Dosage: ALMOST WHOLE BOTTLE
     Dates: start: 20091001, end: 20100101

REACTIONS (2)
  - PRODUCT CONTAMINATION [None]
  - PRODUCT QUALITY ISSUE [None]
